FAERS Safety Report 8778459 (Version 1)
Quarter: 2012Q4

REPORT INFORMATION
  Report Type: 
  Country: DE (occurrence: DE)
  Receive Date: 20120912
  Receipt Date: 20120912
  Transmission Date: 20130627
  Serious: Yes (Other)
  Sender: FDA-Public Use
  Company Number: DE-WATSON-2012-15619

PATIENT
  Age: 52 Year
  Sex: Female

DRUGS (2)
  1. PRAMIPEXOLE DIHYDROCHLORIDE (UNKNOWN) [Suspect]
     Indication: DYSTONIA
     Dosage: .088 mg, bid
     Route: 065
  2. ROPINIROLE HYDROCHLORIDE [Suspect]
     Indication: PRODUCT USED FOR UNKNOWN INDICATION
     Dosage: .5 mg, daily
     Route: 065

REACTIONS (3)
  - Female orgasmic disorder [Recovered/Resolved]
  - Diarrhoea [Recovered/Resolved]
  - Orthostatic hypotension [Recovered/Resolved]
